FAERS Safety Report 12466114 (Version 5)
Quarter: 2017Q2

REPORT INFORMATION
  Report Type: Report from Study
  Country: US (occurrence: US)
  Receive Date: 20160614
  Receipt Date: 20170519
  Transmission Date: 20170830
  Serious: Yes (Hospitalization)
  Sender: FDA-Public Use
  Company Number: US-ACTELION-A-US2016-137348

PATIENT
  Age: 48 Year
  Sex: Female

DRUGS (12)
  1. LETAIRIS [Concomitant]
     Active Substance: AMBRISENTAN
     Dosage: 10 MG, QD
  2. CLARITIN [Concomitant]
     Active Substance: LORATADINE
  3. TRAZODONE [Concomitant]
     Active Substance: TRAZODONE HYDROCHLORIDE
  4. VELETRI [Suspect]
     Active Substance: EPOPROSTENOL
     Indication: PULMONARY ARTERIAL HYPERTENSION
     Dosage: 30.5 NG/KG, PER MIN
     Route: 042
     Dates: start: 20140117
  5. ADEMPAS [Suspect]
     Active Substance: RIOCIGUAT
     Indication: PULMONARY ARTERIAL HYPERTENSION
     Dosage: 2.5 MG, TID
     Route: 065
  6. FUROSEMIDE. [Concomitant]
     Active Substance: FUROSEMIDE
     Dosage: 40 MG, UNK
  7. DIGOXIN. [Concomitant]
     Active Substance: DIGOXIN
     Dosage: 125 MG, UNK
  8. REVATIO [Concomitant]
     Active Substance: SILDENAFIL CITRATE
  9. COUMADIN [Concomitant]
     Active Substance: WARFARIN SODIUM
     Dosage: 7.5 MG, QD
  10. SPIRONOLACTONE. [Concomitant]
     Active Substance: SPIRONOLACTONE
     Dosage: 100 MG, QD
  11. CREON [Concomitant]
     Active Substance: PANCRELIPASE AMYLASE\PANCRELIPASE LIPASE\PANCRELIPASE PROTEASE
  12. POTASSIUM [Concomitant]
     Active Substance: POTASSIUM

REACTIONS (15)
  - Dyspnoea [Not Recovered/Not Resolved]
  - Condition aggravated [Recovered/Resolved]
  - Nausea [Not Recovered/Not Resolved]
  - Supraventricular tachycardia [Recovered/Resolved]
  - Feeding disorder [Recovered/Resolved]
  - Dehydration [Recovered/Resolved]
  - Gastric disorder [Recovered/Resolved]
  - Pancreatitis [Unknown]
  - Tooth abscess [Recovered/Resolved]
  - Vomiting [Not Recovered/Not Resolved]
  - Fatigue [Recovered/Resolved]
  - Diarrhoea [Not Recovered/Not Resolved]
  - Pulmonary arterial hypertension [Recovered/Resolved]
  - Toothache [Recovered/Resolved]
  - Hypotension [Recovered/Resolved]

NARRATIVE: CASE EVENT DATE: 20160521
